FAERS Safety Report 7646544-0 (Version None)
Quarter: 2011Q3

REPORT INFORMATION
  Report Type: 
  Country: None (occurrence: None)
  Receive Date: 20110725
  Receipt Date: 20110707
  Transmission Date: 20111222
  Serious: Yes (Other)
  Sender: FDA-Public Use
  Company Number: JHP201100350

PATIENT
  Age: 8 Year
  Sex: Male

DRUGS (6)
  1. HALOTHANE [Concomitant]
  2. BICARBONATE (SODIUM BICARBONATE) [Concomitant]
  3. ENFLURANE [Concomitant]
  4. NITROUS OXIDE W/ OXYGEN [Concomitant]
  5. DANTROLENE SODIUM [Suspect]
     Indication: HYPERTHERMIA MALIGNANT
     Dosage: 100 MG, TOTAL, INTRAVENOUS
     Route: 042
  6. LIDOCAINE (LIDOCAINE HYDROCHLORIDE) [Concomitant]

REACTIONS (2)
  - RESPIRATORY FAILURE [None]
  - MUSCULAR WEAKNESS [None]
